FAERS Safety Report 5724949-2 (Version None)
Quarter: 2008Q2

REPORT INFORMATION
  Report Type: 
  Country: None (occurrence: None)
  Receive Date: 20080501
  Receipt Date: 20080421
  Transmission Date: 20081010
  Serious: Yes (Hospitalization, Other)
  Sender: FDA-Public Use
  Company Number: FR-AMGEN-UK244302

PATIENT
  Sex: Male

DRUGS (5)
  1. MIMPARA [Suspect]
     Indication: HYPERPARATHYROIDISM SECONDARY
     Route: 048
     Dates: start: 20070620, end: 20070911
  2. SEVELAMER HCL [Concomitant]
  3. FOSRENOL [Concomitant]
     Dates: start: 20070401
  4. IRON [Concomitant]
     Route: 048
  5. SODIUM BICARBONATE [Concomitant]

REACTIONS (5)
  - DRUG INEFFECTIVE [None]
  - NAUSEA [None]
  - PRECOCIOUS PUBERTY [None]
  - VOMITING [None]
  - WEIGHT DECREASED [None]
